FAERS Safety Report 10692399 (Version 3)
Quarter: 2015Q1

REPORT INFORMATION
  Report Type: Report from Study
  Country: US (occurrence: US)
  Receive Date: 20150106
  Receipt Date: 20150312
  Transmission Date: 20150720
  Serious: Yes (Hospitalization)
  Sender: FDA-Public Use
  Company Number: US-GILEAD-2014-0129892

PATIENT
  Age: 69 Year
  Sex: Female
  Weight: 55.8 kg

DRUGS (3)
  1. REMODULIN [Suspect]
     Active Substance: TREPROSTINIL
     Indication: PULMONARY ARTERIAL HYPERTENSION
     Dosage: 0.020 ?G/KG, UNK
     Route: 058
     Dates: start: 20140716
  2. COUMADIN [Concomitant]
     Active Substance: WARFARIN SODIUM
  3. AMBRISENTAN [Suspect]
     Active Substance: AMBRISENTAN
     Indication: PRODUCT USED FOR UNKNOWN INDICATION
     Dosage: 10 MG, QD
     Route: 065
     Dates: start: 20110331

REACTIONS (4)
  - Abdominal discomfort [Unknown]
  - Pain in extremity [Unknown]
  - Nausea [Unknown]
  - Swelling [Unknown]

NARRATIVE: CASE EVENT DATE: 201412
